FAERS Safety Report 5026784-X (Version None)
Quarter: 2006Q2

REPORT INFORMATION
  Report Type: 
  Country: None (occurrence: None)
  Receive Date: 20060615
  Receipt Date: 20060531
  Transmission Date: 20061013
  Serious: No
  Sender: FDA-Public Use
  Company Number: 2006AP02532

PATIENT
  Age: 59 Year
  Sex: Male
  Weight: 48 kg

DRUGS (7)
  1. ANAPEINE [Suspect]
     Indication: EPIDURAL ANAESTHESIA
     Route: 008
     Dates: start: 20050601, end: 20050601
  2. ANTI DEPRESSANT [Suspect]
     Indication: DEPRESSION
  3. ATROPINE SULPHATE [Concomitant]
     Indication: PREMEDICATION
     Dosage: PREMEDICATION ON DAY ROPIVACAINE ADMINSTERED
     Route: 030
     Dates: start: 20050601, end: 20050601
  4. HYDROXYZINE HYDROCHLORIDE [Concomitant]
     Indication: PREMEDICATION
     Dosage: PREMEDICATION ON DAY ROPIVACAINE ADMINSTERED
     Route: 030
     Dates: start: 20050601, end: 20050601
  5. PROPOFOL [Concomitant]
     Indication: INDUCTION OF ANAESTHESIA
     Route: 042
     Dates: start: 20050601, end: 20050601
  6. FENTANYL CITRATE [Concomitant]
     Route: 042
     Dates: start: 20050601, end: 20050601
  7. VECURONIUM BROMIDE [Concomitant]
     Indication: INDUCTION OF ANAESTHESIA
     Route: 042
     Dates: start: 20050601, end: 20050601

REACTIONS (2)
  - BLOOD PRESSURE DECREASED [None]
  - PROCEDURAL COMPLICATION [None]
